FAERS Safety Report 9035518 (Version 1)
Quarter: 2013Q1

REPORT INFORMATION
  Report Type: Report from Study
  Country: US (occurrence: US)
  Receive Date: 20130129
  Receipt Date: 20130129
  Transmission Date: 20140127
  Serious: No
  Sender: FDA-Public Use
  Company Number: US-ABBOTT-12P-163-0907172-00

PATIENT
  Age: 73 Year
  Sex: Female

DRUGS (5)
  1. HUMIRA 40 MG/0.8 ML PEN [Suspect]
     Indication: RHEUMATOID ARTHRITIS
     Dates: start: 2009, end: 201102
  2. HUMIRA 40 MG/0.8 ML PEN [Suspect]
     Dates: start: 201112
  3. METOPROLOL [Concomitant]
     Indication: HYPERTENSION
  4. AMLODIPINE [Concomitant]
     Indication: HYPERTENSION
     Dosage: 5MG EVERY DAY
  5. SYNTHROID [Concomitant]
     Indication: THYROIDECTOMY
     Dosage: 100 MCG EVERY DAY

REACTIONS (11)
  - Herpes zoster [Recovering/Resolving]
  - Nerve injury [Unknown]
  - Burning sensation [Unknown]
  - Pruritus [Unknown]
  - Neuralgia [Unknown]
  - Nervous system disorder [Unknown]
  - Scar [Unknown]
  - Visual impairment [Unknown]
  - Blister [Unknown]
  - Pain [Unknown]
  - Burning sensation [Unknown]
